FAERS Safety Report 18504058 (Version 1)
Quarter: 2020Q4

REPORT INFORMATION
  Report Type: Spontaneous
  Country: US (occurrence: US)
  Receive Date: 20201113
  Receipt Date: 20201113
  Transmission Date: 20210114
  Serious: No
  Sender: FDA-Public Use
  Company Number: US-NOVOPROD-752665

PATIENT
  Age: 64 Year
  Sex: Male

DRUGS (1)
  1. FIASP [Suspect]
     Active Substance: INSULIN ASPART
     Indication: TYPE 1 DIABETES MELLITUS
     Dosage: SLIDING SCALE AND AN ADDITIONAL INJECTION AFTER MEALS
     Route: 058
     Dates: start: 202002

REACTIONS (4)
  - Arthralgia [Unknown]
  - Blood glucose decreased [Unknown]
  - Balance disorder [Unknown]
  - Contusion [Unknown]
